FAERS Safety Report 20881654 (Version 1)
Quarter: 2022Q2

REPORT INFORMATION
  Report Type: Spontaneous
  Country: US (occurrence: US)
  Receive Date: 20220527
  Receipt Date: 20220527
  Transmission Date: 20220720
  Serious: No
  Sender: FDA-Public Use
  Company Number: US-BRISTOL-MYERS SQUIBB COMPANY-2022-032996

PATIENT
  Age: 81 Year
  Sex: Female
  Weight: 55.8 kg

DRUGS (7)
  1. POMALYST [Suspect]
     Active Substance: POMALIDOMIDE
     Indication: Plasma cell myeloma
     Dosage: DOSE : 2 MG; FREQ : ?21 DAYS ON 7 DAYS OFF?
     Route: 048
     Dates: start: 20201223
  2. Fersulfate 325 mg [Concomitant]
     Indication: Product used for unknown indication
  3. JANUVIA [Concomitant]
     Active Substance: SITAGLIPTIN PHOSPHATE
     Indication: Product used for unknown indication
  4. LOVASTATIN [Concomitant]
     Active Substance: LOVASTATIN
     Indication: Product used for unknown indication
  5. synthroid 25 microgram [Concomitant]
     Indication: Product used for unknown indication
  6. omegastatin 40 mg [Concomitant]
     Indication: Product used for unknown indication
  7. Aspirin 81 mg tablet [Concomitant]
     Indication: Product used for unknown indication

REACTIONS (2)
  - Full blood count abnormal [Unknown]
  - Intentional device use issue [Unknown]

NARRATIVE: CASE EVENT DATE: 20220426
